FAERS Safety Report 4344767-X (Version None)
Quarter: 2004Q2

REPORT INFORMATION
  Report Type: 
  Country: None (occurrence: None)
  Receive Date: 20040423
  Receipt Date: 20030512
  Transmission Date: 20050107
  Serious: No
  Sender: FDA-Public Use
  Company Number: US-GLAXOSMITHKLINE-A0407979A

PATIENT
  Age: 71 Year
  Sex: Male
  Weight: 90.9 kg

DRUGS (4)
  1. LEUKERAN [Suspect]
     Dosage: 2MG PER DAY
     Route: 048
     Dates: start: 20030428
  2. ALLOPURINOL [Concomitant]
     Indication: GOUT
     Route: 048
  3. LOTREL [Concomitant]
     Route: 048
  4. ATENOLOL [Concomitant]
     Route: 048

REACTIONS (1)
  - LYMPHADENOPATHY [None]
